FAERS Safety Report 18058360 (Version 1)
Quarter: 2020Q3

REPORT INFORMATION
  Report Type: Report from Study
  Country: IT (occurrence: IT)
  Receive Date: 20200723
  Receipt Date: 20200723
  Transmission Date: 20201103
  Serious: Yes (Hospitalization)
  Sender: FDA-Public Use
  Company Number: IT-MYLANLABS-2020M1066478

PATIENT
  Age: 18 Year
  Sex: Female

DRUGS (3)
  1. QUETIAPINE. [Suspect]
     Active Substance: QUETIAPINE
     Indication: BIPOLAR DISORDER
     Dosage: 16800 MILLIGRAM, TOTAL
     Route: 048
     Dates: start: 20200609, end: 20200609
  2. RESILIENT [Suspect]
     Active Substance: LITHIUM SULFATE
     Indication: BIPOLAR DISORDER
     Dosage: 6225 MILLIGRAM, QD
     Route: 048
     Dates: start: 20200609, end: 20200609
  3. BRINTELLIX [Suspect]
     Active Substance: VORTIOXETINE HYDROBROMIDE
     Indication: BIPOLAR DISORDER
     Dosage: 280 MILLIGRAM, QD
     Route: 048
     Dates: start: 20200609, end: 20200609

REACTIONS (3)
  - Vomiting [Recovering/Resolving]
  - Drug abuse [Recovering/Resolving]
  - Antipsychotic drug level increased [Recovering/Resolving]

NARRATIVE: CASE EVENT DATE: 20200609
